FAERS Safety Report 17511009 (Version 5)
Quarter: 2020Q3

REPORT INFORMATION
  Report Type: Report from Study
  Country: US (occurrence: US)
  Receive Date: 20200306
  Receipt Date: 20200806
  Transmission Date: 20201102
  Serious: Yes (Other)
  Sender: FDA-Public Use
  Company Number: US-ACTELION-A-US2020-200964

PATIENT
  Sex: Male
  Weight: 122.45 kg

DRUGS (2)
  1. OPSUMIT [Suspect]
     Active Substance: MACITENTAN
     Indication: PULMONARY ARTERIAL HYPERTENSION
     Dosage: 10 MG, QD
     Route: 048
  2. UPTRAVI [Suspect]
     Active Substance: SELEXIPAG
     Indication: PULMONARY ARTERIAL HYPERTENSION
     Dosage: 1600 MCG, BID
     Route: 048

REACTIONS (11)
  - Knee arthroplasty [Unknown]
  - Abdominal discomfort [Unknown]
  - Joint stiffness [Unknown]
  - Diverticulitis [Unknown]
  - Pain in jaw [Unknown]
  - Oxygen saturation decreased [Unknown]
  - Functional gastrointestinal disorder [Unknown]
  - Herpes zoster [Unknown]
  - Localised infection [Unknown]
  - Diarrhoea [Unknown]
  - Ocular hyperaemia [Unknown]
